FAERS Safety Report 17719587 (Version 4)
Quarter: 2020Q3

REPORT INFORMATION
  Report Type: Spontaneous
  Country: DE (occurrence: DE)
  Receive Date: 20200428
  Receipt Date: 20200729
  Transmission Date: 20201102
  Serious: Yes (Other)
  Sender: FDA-Public Use
  Company Number: NVSC2020DE112666

PATIENT
  Age: 18 Year

DRUGS (1)
  1. KYMRIAH [Suspect]
     Active Substance: TISAGENLECLEUCEL
     Indication: DIFFUSE LARGE B-CELL LYMPHOMA
     Dosage: UNK
     Route: 065
     Dates: start: 20191028

REACTIONS (5)
  - Swelling [Unknown]
  - Diffuse large B-cell lymphoma [Unknown]
  - Erysipelas [Unknown]
  - Malignant neoplasm progression [Unknown]
  - Lymphatic disorder [Unknown]

NARRATIVE: CASE EVENT DATE: 201912
